FAERS Safety Report 4711474-0 (Version None)
Quarter: 2005Q3

REPORT INFORMATION
  Report Type: 
  Country: None (occurrence: None)
  Receive Date: 20050711
  Receipt Date: 20050624
  Transmission Date: 20060218
  Serious: Yes (Other)
  Sender: FDA-Public Use
  Company Number: EM2005-0298

PATIENT
  Age: 39 Year
  Sex: Male

DRUGS (31)
  1. PROLEUKIN [Suspect]
     Indication: HIV INFECTION
     Dosage: 1 MIU, TID, SUBCUTAN.
     Route: 058
     Dates: start: 20050613, end: 20050618
  2. COMBIVIR [Concomitant]
  3. XANAX [Concomitant]
  4. SEREVENT [Concomitant]
  5. ACYCLOVIR [Concomitant]
  6. CELEBREX [Concomitant]
  7. PRILOSEC [Concomitant]
  8. IBUPROFEN [Concomitant]
  9. TESTOSTERONE [Concomitant]
  10. BENADRYL [Concomitant]
  11. PROZAC [Concomitant]
  12. NEURONTIN [Concomitant]
  13. VIRAMUNE [Concomitant]
  14. LORISET [Concomitant]
  15. SOMA [Concomitant]
  16. ALBUTEROL [Concomitant]
  17. PHENERGAN ^RHONE-POULENC^ (PROMETHAZINE HYDROCHLORIDE) [Concomitant]
  18. GAS-X (SIMETICONE) [Concomitant]
  19. IMODIUM [Concomitant]
  20. PEPTO-BISMOL (BISMUTH SUBSALICYLATE) [Concomitant]
  21. M.V.I. (ASCORBIC ACID, DEXPANTHENOL, ERGOCALCIFEROL, NICOTINAMIDE, PYR [Concomitant]
  22. RETINOL, RIBOFLAVIN, THIAMINE HYDROCHLORIDE, TOCOPHEROL [Concomitant]
  23. MILK THISTLE [Concomitant]
  24. ACIDOPHILUS ^ZYMA^ (LACTOBACILLUS ACIDOPHILUS) [Concomitant]
  25. HERB-FIVER COMBO [Concomitant]
  26. ASTRAGALUS [Concomitant]
  27. BONE-UP [Concomitant]
  28. GINSENG (GINSENG) [Concomitant]
  29. GREEN ALGAE [Concomitant]
  30. MELATONIN (MELATONIN) [Concomitant]
  31. VALERIAN ROOT (VALERIAN ROOT) [Concomitant]

REACTIONS (4)
  - INFLUENZA LIKE ILLNESS [None]
  - NAUSEA [None]
  - PARAESTHESIA [None]
  - VOMITING [None]
